FAERS Safety Report 18901208 (Version 1)
Quarter: 2021Q1

REPORT INFORMATION
  Report Type: Other
  Country: US (occurrence: US)
  Receive Date: 20210217
  Receipt Date: 20210217
  Transmission Date: 20210420
  Serious: Yes (Other)
  Sender: FDA-Public Use
  Company Number: US-ROCHE-2556601

PATIENT
  Age: 69 Year
  Sex: Female

DRUGS (33)
  1. OCREVUS [Suspect]
     Active Substance: OCRELIZUMAB
     Indication: PRIMARY PROGRESSIVE MULTIPLE SCLEROSIS
     Dosage: DATE OF TREATMENT: 05/FEB/2021 (300 MG), 07/AUG/2020 (300 MG), 07/FEB/2020 (300 MG), 09/AUG/2020,
     Route: 065
     Dates: start: 201707
  2. SIMVASTATIN. [Concomitant]
     Active Substance: SIMVASTATIN
     Route: 048
  3. AMLODIPINE [Concomitant]
     Active Substance: AMLODIPINE BESYLATE
     Route: 048
  4. VITAMIN D3 [Concomitant]
     Active Substance: CHOLECALCIFEROL
     Route: 048
     Dates: start: 20201214
  5. ONDANSETRON [Concomitant]
     Active Substance: ONDANSETRON
     Indication: NAUSEA
     Route: 048
  6. FLONASE [Concomitant]
     Active Substance: FLUTICASONE PROPIONATE
     Route: 045
  7. TURMERIC [Concomitant]
     Active Substance: HERBALS\TURMERIC
     Route: 048
  8. ACETAMINOPHEN. [Concomitant]
     Active Substance: ACETAMINOPHEN
     Route: 048
  9. FIBER CHOICE [Concomitant]
     Route: 048
  10. LYSINE [Concomitant]
     Active Substance: LYSINE
  11. FOLIC ACID. [Concomitant]
     Active Substance: FOLIC ACID
     Route: 048
  12. OCREVUS [Suspect]
     Active Substance: OCRELIZUMAB
     Route: 065
     Dates: start: 20170809
  13. IPRATROPIUM [Concomitant]
     Active Substance: IPRATROPIUM
     Dosage: 2 SPRAY INTRA?NASALLY 4 TIMES A DAY
     Route: 045
  14. TOPAMAX [Concomitant]
     Active Substance: TOPIRAMATE
     Route: 048
  15. ERYTHROMYCIN. [Concomitant]
     Active Substance: ERYTHROMYCIN
     Dosage: APPLIED TOPICALLY QD PRN
     Route: 061
  16. NUVIGIL [Concomitant]
     Active Substance: ARMODAFINIL
     Route: 048
  17. DRISDOL [Concomitant]
     Active Substance: ERGOCALCIFEROL
     Route: 048
     Dates: start: 20201214
  18. LOSARTAN. [Concomitant]
     Active Substance: LOSARTAN
     Route: 048
  19. SODIUM CHLORIDE. [Concomitant]
     Active Substance: SODIUM CHLORIDE
     Dosage: 500 CC IV
     Route: 042
     Dates: start: 20180104
  20. CLONAZEPAM. [Concomitant]
     Active Substance: CLONAZEPAM
     Route: 048
  21. GABAPENTIN. [Concomitant]
     Active Substance: GABAPENTIN
     Route: 048
  22. METHYLPREDNISOLONE. [Concomitant]
     Active Substance: METHYLPREDNISOLONE
     Dosage: 05/FEB/2021 (125 MG), 07/AUG/2020 (125 MG),
     Dates: start: 20200224
  23. OCREVUS [Suspect]
     Active Substance: OCRELIZUMAB
     Route: 042
  24. DYSPORT [Concomitant]
     Active Substance: ABOBOTULINUMTOXINA
     Dosage: 500 UNITS POWDER
     Route: 030
     Dates: start: 20200916
  25. BACLOFEN. [Concomitant]
     Active Substance: BACLOFEN
     Route: 048
  26. CALCIUM 600+VIT D [Concomitant]
     Active Substance: CALCIUM\ERGOCALCIFEROL
     Route: 048
  27. THERATEARS [Concomitant]
     Active Substance: CARBOXYMETHYLCELLULOSE SODIUM
     Dosage: 1 GTT IN EACH EYE 4 TIMES A DAY
  28. DULOXETINE. [Concomitant]
     Active Substance: DULOXETINE
     Dosage: 1 CAP AM AND 1/2 CAP IN PM
     Route: 048
  29. LEVOTHYROXINE. [Concomitant]
     Active Substance: LEVOTHYROXINE
     Route: 048
  30. VITAMIN B12 [Concomitant]
     Active Substance: CYANOCOBALAMIN
     Route: 048
     Dates: start: 20201214
  31. GABAPENTIN. [Concomitant]
     Active Substance: GABAPENTIN
     Route: 048
     Dates: start: 20201030
  32. AMPYRA [Concomitant]
     Active Substance: DALFAMPRIDINE
     Route: 048
  33. OMEPRAZOLE. [Concomitant]
     Active Substance: OMEPRAZOLE
     Route: 048

REACTIONS (5)
  - Multiple sclerosis relapse [Recovered/Resolved]
  - Head injury [Recovered/Resolved]
  - Fall [Unknown]
  - Loss of consciousness [Recovered/Resolved]
  - Speech disorder [Recovered/Resolved]

NARRATIVE: CASE EVENT DATE: 201902
